APPROVED DRUG PRODUCT: FUZEON
Active Ingredient: ENFUVIRTIDE
Strength: 90MG/VIAL
Dosage Form/Route: INJECTABLE;SUBCUTANEOUS
Application: N021481 | Product #001
Applicant: HOFFMANN LA ROCHE INC
Approved: Mar 13, 2003 | RLD: Yes | RS: No | Type: DISCN